FAERS Safety Report 4697328-7 (Version None)
Quarter: 2005Q2

REPORT INFORMATION
  Report Type: 
  Country: None (occurrence: None)
  Receive Date: 20050620
  Receipt Date: 20050608
  Transmission Date: 20051028
  Serious: Yes (Life-Threatening)
  Sender: FDA-Public Use
  Company Number: 2005086962

PATIENT
  Age: 80 Year
  Sex: Female
  Weight: 49 kg

DRUGS (3)
  1. SOLU-MEDROL [Suspect]
     Indication: PROPHYLAXIS OF NAUSEA AND VOMITING
     Dosage: 80 MG (40 MG, 2 IN 1 D), INTRAVENOUS
     Route: 042
     Dates: start: 20050519, end: 20050519
  2. RANITIDINE [Suspect]
     Indication: PROPHYLAXIS OF NAUSEA AND VOMITING
     Dosage: 300 MG(50 MG, 15 MIN), INTRAVENOUS
     Route: 042
     Dates: start: 20050519, end: 20050519
  3. ONDANSETRON HYDROCHLORIDE [Suspect]
     Indication: PROPHYLAXIS OF NAUSEA AND VOMITING
     Dosage: 8 MG (8 MG, 15 MIN), INTRAVENOUS
     Route: 042
     Dates: start: 20050519, end: 20050519

REACTIONS (7)
  - BLOOD PRESSURE DECREASED [None]
  - CARDIO-RESPIRATORY ARREST [None]
  - DIZZINESS [None]
  - HEART RATE DECREASED [None]
  - MALAISE [None]
  - OXYGEN SATURATION DECREASED [None]
  - VOMITING [None]
